FAERS Safety Report 10451322 (Version 2)
Quarter: 2014Q3

REPORT INFORMATION
  Report Type: Spontaneous
  Country: CN (occurrence: CN)
  Receive Date: 20140912
  Receipt Date: 20140912
  Transmission Date: 20150326
  Serious: Yes (Hospitalization)
  Sender: FDA-Public Use
  Company Number: CN-BAUSCH-DSA_62076_2013

PATIENT
  Age: 51 Year
  Sex: Male

DRUGS (13)
  1. 5-FU [Suspect]
     Active Substance: FLUOROURACIL
     Indication: COLON CANCER
     Route: 040
     Dates: start: 20121206, end: 20121206
  2. BLINDED THERAPY [Suspect]
     Active Substance: UNSPECIFIED INGREDIENT
     Indication: COLON CANCER
     Route: 041
     Dates: start: 20121206, end: 20121206
  3. BLINDED THERAPY [Suspect]
     Active Substance: UNSPECIFIED INGREDIENT
     Route: 041
     Dates: start: 20121220, end: 20121220
  4. LEUCOVORIN [Suspect]
     Active Substance: LEUCOVORIN
     Route: 041
     Dates: start: 20121220, end: 20121220
  5. 5-FU [Suspect]
     Active Substance: FLUOROURACIL
     Route: 041
     Dates: start: 20121206, end: 20121206
  6. 5-FU [Suspect]
     Active Substance: FLUOROURACIL
     Route: 041
     Dates: start: 20121220, end: 20121220
  7. IRINOTECAN [Suspect]
     Active Substance: IRINOTECAN
     Route: 041
     Dates: start: 20121220, end: 20121220
  8. PROMETHAZINE HYDROCHLORIDE. [Concomitant]
     Active Substance: PROMETHAZINE HYDROCHLORIDE
     Indication: PRODUCT USED FOR UNKNOWN INDICATION
     Dates: start: 20121220, end: 20121220
  9. 5-FU [Suspect]
     Active Substance: FLUOROURACIL
     Route: 040
     Dates: start: 20121220, end: 20121220
  10. IRINOTECAN [Suspect]
     Active Substance: IRINOTECAN
     Indication: COLON CANCER
     Route: 041
     Dates: start: 20121206, end: 20121206
  11. LEUCOVORIN [Suspect]
     Active Substance: LEUCOVORIN
     Indication: COLON CANCER
     Route: 041
     Dates: start: 20121206, end: 20121206
  12. LOPERAMIDE HYDROCHLORIDE. [Concomitant]
     Active Substance: LOPERAMIDE HYDROCHLORIDE
     Indication: PRODUCT USED FOR UNKNOWN INDICATION
     Dates: start: 20121224, end: 20121226
  13. DEXAMETHASONE. [Concomitant]
     Active Substance: DEXAMETHASONE
     Indication: PRODUCT USED FOR UNKNOWN INDICATION
     Dates: start: 20121220, end: 20121220

REACTIONS (1)
  - Proteinuria [Recovering/Resolving]

NARRATIVE: CASE EVENT DATE: 20130102
